FAERS Safety Report 5941703-7 (Version None)
Quarter: 2008Q4

REPORT INFORMATION
  Report Type: 
  Country: None (occurrence: None)
  Receive Date: 20081105
  Receipt Date: 20081024
  Transmission Date: 20090506
  Serious: Yes (Death, Hospitalization)
  Sender: FDA-Public Use
  Company Number: US-ROCHE-586647

PATIENT
  Sex: Male
  Weight: 35.3 kg

DRUGS (18)
  1. BONIVA [Suspect]
     Indication: OSTEOPOROSIS
     Route: 048
     Dates: start: 20071003, end: 20080908
  2. ACIPHEX [Concomitant]
     Route: 048
     Dates: start: 20080116, end: 20080908
  3. ACIPHEX [Concomitant]
     Route: 048
     Dates: start: 20020101, end: 20070930
  4. SPIRIVA [Concomitant]
     Indication: EMPHYSEMA
     Route: 055
     Dates: start: 20071001, end: 20080908
  5. CLONIDINE [Concomitant]
     Indication: HYPERTENSION
     Route: 048
     Dates: start: 19970101, end: 20080908
  6. ATENOLOL [Concomitant]
     Indication: HYPERTENSION
     Route: 048
     Dates: start: 19970101, end: 20080908
  7. ASPIRIN [Concomitant]
     Route: 048
     Dates: start: 19800101, end: 20080908
  8. LIPITOR [Concomitant]
     Indication: HYPERLIPIDAEMIA
     Route: 048
     Dates: start: 19970101, end: 20080908
  9. OSCAL [Concomitant]
     Route: 048
     Dates: start: 20070101, end: 20071001
  10. ASCORBIC ACID [Concomitant]
     Route: 048
     Dates: start: 19970101, end: 20080908
  11. VITAMIN E [Concomitant]
     Route: 048
     Dates: start: 19970101, end: 20080908
  12. MULTIVITAMIN NOS [Concomitant]
     Route: 048
     Dates: start: 20020101, end: 20080908
  13. PRILOSEC [Concomitant]
     Route: 048
     Dates: start: 20071003, end: 20071017
  14. PRILOSEC [Concomitant]
     Route: 048
     Dates: start: 20071122, end: 20080115
  15. OSCAL [Concomitant]
     Route: 048
     Dates: start: 20071225, end: 20071226
  16. ADVAIR DISKUS 100/50 [Concomitant]
     Indication: EMPHYSEMA
     Dosage: REPORTED AS ADVAIR 250/50.
     Route: 055
     Dates: start: 20060101, end: 20080908
  17. ZANTAC [Concomitant]
     Route: 048
     Dates: start: 20080818, end: 20080907
  18. DOXAZOSIN MESYLATE [Concomitant]
     Indication: BENIGN PROSTATIC HYPERPLASIA
     Route: 048
     Dates: start: 20080818, end: 20080907

REACTIONS (2)
  - DEATH [None]
  - SYNCOPE [None]
